FAERS Safety Report 6244238-X (Version None)
Quarter: 2009Q2

REPORT INFORMATION
  Report Type: 
  Country: None (occurrence: None)
  Receive Date: 20090623
  Receipt Date: 20090623
  Transmission Date: 20091009
  Serious: Yes (Hospitalization)
  Sender: FDA-Public Use
  Company Number: None

PATIENT
  Age: 55 Year
  Sex: Male
  Weight: 83.91 kg

DRUGS (2)
  1. LITHIUM CARBONATE [Suspect]
     Indication: SCHIZOPHRENIA
     Dosage: 600 MG BID PO
     Route: 048
     Dates: start: 20090526, end: 20090606
  2. LITHIUM CARBONATE [Suspect]
     Indication: TACHYPHRENIA
     Dosage: 600 MG BID PO
     Route: 048
     Dates: start: 20090526, end: 20090606

REACTIONS (10)
  - ATAXIA [None]
  - DIZZINESS [None]
  - DYSARTHRIA [None]
  - FALL [None]
  - HYPOTENSION [None]
  - MALAISE [None]
  - SEDATION [None]
  - SYNCOPE [None]
  - TACHYCARDIA [None]
  - THERAPEUTIC AGENT TOXICITY [None]
